FAERS Safety Report 4422076-8 (Version None)
Quarter: 2004Q3

REPORT INFORMATION
  Report Type: 
  Country: None (occurrence: None)
  Receive Date: 20040712
  Receipt Date: 20030624
  Transmission Date: 20050211
  Serious: No
  Sender: FDA-Public Use
  Company Number: TAP2003Q01538

PATIENT
  Age: 63 Year
  Sex: Female
  Weight: 63.5036 kg

DRUGS (4)
  1. PREVACID [Suspect]
     Indication: GASTRIC DISORDER
     Dosage: 30 MG, 1 IN 1 D, ORAL
     Route: 048
     Dates: start: 20030623, end: 20030624
  2. PAXIL [Concomitant]
  3. VICODIN [Concomitant]
  4. STEROIDS [Concomitant]

REACTIONS (4)
  - DIARRHOEA [None]
  - DYSPNOEA [None]
  - URTICARIA [None]
  - VOMITING [None]
